FAERS Safety Report 9372558 (Version 2)
Quarter: 2013Q4

REPORT INFORMATION
  Report Type: Spontaneous
  Country: US (occurrence: US)
  Receive Date: 20130627
  Receipt Date: 20131014
  Transmission Date: 20140711
  Serious: Yes (Hospitalization, Other)
  Sender: FDA-Public Use
  Company Number: US-PFIZER INC-2013188552

PATIENT
  Age: 83 Year
  Sex: Female
  Weight: 52.15 kg

DRUGS (4)
  1. PREMARIN [Suspect]
     Dosage: UNK, WEEKLY
     Route: 067
  2. LISINOPRIL [Concomitant]
     Indication: HYPERTENSION
     Dosage: UNK, 1X/DAY
  3. HYDROXYUREA [Concomitant]
     Indication: THROMBOCYTOSIS
     Dosage: 500 MG, 4X/WEEK
  4. HYDROXYUREA [Concomitant]
     Dosage: 500 MG, 1X/DAY

REACTIONS (4)
  - Cerebrovascular accident [Unknown]
  - Deafness [Unknown]
  - Visual impairment [Not Recovered/Not Resolved]
  - Vision blurred [Not Recovered/Not Resolved]
